FAERS Safety Report 9976981 (Version 1)
Quarter: 2014Q1

REPORT INFORMATION
  Report Type: Spontaneous
  Country: US (occurrence: US)
  Receive Date: 20140306
  Receipt Date: 20140306
  Transmission Date: 20141002
  Serious: Yes (Other)
  Sender: FDA-Public Use
  Company Number: US-ABBVIE-13P-163-1166207-00

PATIENT
  Age: 43 Year
  Sex: Male
  Weight: 72.64 kg

DRUGS (9)
  1. HUMIRA [Suspect]
     Indication: CROHN^S DISEASE
     Dates: start: 2008, end: 200903
  2. HUMIRA [Suspect]
     Dates: start: 200903, end: 200909
  3. HUMIRA [Suspect]
     Dates: start: 2009
  4. ADDERALL [Concomitant]
     Indication: ATTENTION DEFICIT/HYPERACTIVITY DISORDER
  5. PREDNISONE [Concomitant]
     Indication: POUCHITIS
  6. FLAGYL [Concomitant]
     Indication: POUCHITIS
  7. NORCO [Concomitant]
     Indication: PAIN
  8. FENTANYL [Concomitant]
     Indication: CROHN^S DISEASE
  9. FENTANYL [Concomitant]
     Indication: PAIN

REACTIONS (5)
  - Tooth abscess [Recovered/Resolved]
  - Headache [Not Recovered/Not Resolved]
  - Rash [Not Recovered/Not Resolved]
  - Fungal skin infection [Not Recovered/Not Resolved]
  - Tooth loss [Not Recovered/Not Resolved]
